FAERS Safety Report 5418425-4 (Version None)
Quarter: 2007Q3

REPORT INFORMATION
  Report Type: 
  Country: None (occurrence: None)
  Receive Date: 20070817
  Receipt Date: 20070807
  Transmission Date: 20080115
  Serious: Yes (Other)
  Sender: FDA-Public Use
  Company Number: DE-AMGEN-US205607

PATIENT
  Sex: Male
  Weight: 103 kg

DRUGS (4)
  1. ENBREL [Suspect]
     Indication: PSORIATIC ARTHROPATHY
     Route: 058
     Dates: start: 20061107, end: 20061228
  2. METHOTREXATE SODIUM [Suspect]
     Indication: PSORIATIC ARTHROPATHY
     Dosage: UNKNOWN
     Route: 065
     Dates: start: 20070101
  3. PANTOPRAZOLE SODIUM [Concomitant]
     Indication: REFLUX OESOPHAGITIS
     Dosage: ONE TIME DAILY
     Route: 048
  4. VOLTAREN [Concomitant]
     Indication: PSORIATIC ARTHROPATHY
     Dosage: TWO TIMES DAILY
     Route: 048

REACTIONS (1)
  - AMYOTROPHIC LATERAL SCLEROSIS [None]
